FAERS Safety Report 5828185-0 (Version None)
Quarter: 2008Q3

REPORT INFORMATION
  Report Type: 
  Country: None (occurrence: None)
  Receive Date: 20080731
  Receipt Date: 20080729
  Transmission Date: 20090109
  Serious: Yes (Other)
  Sender: FDA-Public Use
  Company Number: US-BRISTOL-MYERS SQUIBB COMPANY-13971080

PATIENT
  Age: 71 Year
  Sex: Male

DRUGS (5)
  1. MEGESTROL ACETATE [Suspect]
     Indication: NEOPLASM MALIGNANT
  2. OXYCODONE HCL [Suspect]
     Indication: PAIN
  3. FLUDROCORTISONE ACETATE [Suspect]
  4. ESCITALOPRAM [Suspect]
  5. LEVOTHYROXINE SODIUM [Suspect]

REACTIONS (7)
  - ADRENAL INSUFFICIENCY [None]
  - ANDROGEN DEFICIENCY [None]
  - DYSPNOEA EXERTIONAL [None]
  - ERYTHEMA [None]
  - HYPERHIDROSIS [None]
  - NOCTURIA [None]
  - SOMNOLENCE [None]
